FAERS Safety Report 9266326 (Version 1)
Quarter: 2013Q2

REPORT INFORMATION
  Report Type: Spontaneous
  Country: BR (occurrence: BR)
  Receive Date: 20130502
  Receipt Date: 20130502
  Transmission Date: 20140414
  Serious: Yes (Other)
  Sender: FDA-Public Use
  Company Number: BR-ACCORD-017460

PATIENT
  Age: 62 Year
  Sex: Female
  Weight: 64.5 kg

DRUGS (2)
  1. PACLITAXEL [Suspect]
     Indication: MALIGNANT NEOPLASM OF UNKNOWN PRIMARY SITE
     Dates: start: 20130318
  2. CISPLATIN [Suspect]
     Indication: MALIGNANT NEOPLASM OF UNKNOWN PRIMARY SITE
     Dates: start: 20130318

REACTIONS (4)
  - Back pain [Recovered/Resolved]
  - Vomiting [Unknown]
  - Erythema [Recovered/Resolved]
  - Dyspnoea [Recovered/Resolved]
